FAERS Safety Report 20765856 (Version 2)
Quarter: 2022Q2

REPORT INFORMATION
  Report Type: Report from Study
  Country: US (occurrence: US)
  Receive Date: 20220428
  Receipt Date: 20220502
  Transmission Date: 20220721
  Serious: No
  Sender: FDA-Public Use
  Company Number: US-SANOFI-01071139

PATIENT
  Age: 67 Year
  Sex: Female

DRUGS (1)
  1. DUPIXENT [Suspect]
     Active Substance: DUPILUMAB
     Indication: Dermatitis atopic
     Dosage: UNK UNK, TOTAL
     Dates: start: 20220408

REACTIONS (6)
  - Skin warm [Unknown]
  - Rash erythematous [Recovered/Resolved]
  - Dermatitis contact [Recovering/Resolving]
  - Dizziness [Recovering/Resolving]
  - Skin discolouration [Recovering/Resolving]
  - Rash [Recovered/Resolved]

NARRATIVE: CASE EVENT DATE: 20220401
